FAERS Safety Report 23502299 (Version 2)
Quarter: 2024Q1

REPORT INFORMATION
  Report Type: Spontaneous
  Country: CZ (occurrence: CZ)
  Receive Date: 20240208
  Receipt Date: 20240220
  Transmission Date: 20240409
  Serious: Yes (Other)
  Sender: FDA-Public Use
  Company Number: CZ-SUN PHARMACEUTICAL INDUSTRIES LTD-2024R1-429574

PATIENT
  Age: 71 Year
  Sex: Male

DRUGS (4)
  1. DEXAMETHASONE [Suspect]
     Active Substance: DEXAMETHASONE
     Indication: Follicular lymphoma stage IV
     Dosage: 4 CYCLES OF R-DHAOX IMMUNOCHEMOTHERAPY
     Route: 065
     Dates: start: 202205
  2. RITUXIMAB [Suspect]
     Active Substance: RITUXIMAB
     Indication: Follicular lymphoma stage IV
     Dosage: 4 CYCLES OF R-DHAOX IMMUNOCHEMOTHERAPY
     Route: 065
     Dates: start: 202205
  3. OXALIPLATIN [Suspect]
     Active Substance: OXALIPLATIN
     Indication: Follicular lymphoma stage IV
     Dosage: 4 CYCLES OF R-DHAOX IMMUNOCHEMOTHERAPY
     Route: 065
     Dates: start: 202205
  4. CYTARABINE [Suspect]
     Active Substance: CYTARABINE
     Indication: Follicular lymphoma stage IV
     Dosage: 4 CYCLES OF R-DHAOX IMMUNOCHEMOTHERAPY IN REDUCED DOSES DUE TO AGE
     Route: 065
     Dates: start: 202205

REACTIONS (1)
  - Therapy non-responder [Unknown]

NARRATIVE: CASE EVENT DATE: 20230101
